FAERS Safety Report 17919679 (Version 4)
Quarter: 2021Q2

REPORT INFORMATION
  Report Type: Report from Study
  Country: US (occurrence: US)
  Receive Date: 20200619
  Receipt Date: 20210609
  Transmission Date: 20210717
  Serious: No
  Sender: FDA-Public Use
  Company Number: NVSC2020US172731

PATIENT
  Sex: Female

DRUGS (2)
  1. COSENTYX [Suspect]
     Active Substance: SECUKINUMAB
     Dosage: 150 MG, QMO
     Route: 058
  2. COSENTYX [Suspect]
     Active Substance: SECUKINUMAB
     Indication: SACROILIITIS
     Dosage: 300 MG, QMO
     Route: 058
     Dates: start: 20200614

REACTIONS (2)
  - Inappropriate schedule of product administration [Unknown]
  - Maternal exposure during pregnancy [Unknown]
